FAERS Safety Report 4357366-0 (Version None)
Quarter: 2004Q2

REPORT INFORMATION
  Report Type: 
  Country: None (occurrence: None)
  Receive Date: 20040513
  Receipt Date: 20040405
  Transmission Date: 20050107
  Serious: Yes (Hospitalization, Other)
  Sender: FDA-Public Use
  Company Number: 200412680US

PATIENT
  Age: 47 Year
  Sex: Male

DRUGS (2)
  1. LOVENOX [Suspect]
     Indication: BLOOD DISORDER
     Dosage: DOSE: UNK
  2. LOVENOX [Suspect]
     Indication: DEEP VEIN THROMBOSIS
     Dosage: DOSE: UNK

REACTIONS (3)
  - GRAND MAL CONVULSION [None]
  - OSTEOPENIA [None]
  - SPINAL FRACTURE [None]
